FAERS Safety Report 9631175 (Version 3)
Quarter: 2014Q3

REPORT INFORMATION
  Report Type: Spontaneous
  Country: JP (occurrence: None)
  Receive Date: 20131015
  Receipt Date: 20140721
  Transmission Date: 20150326
  Serious: Yes (Death, Other)
  Sender: FDA-Public Use
  Company Number: ABR_01156_2013

PATIENT
  Age: 69 Year
  Sex: Male
  Weight: 63.7 kg

DRUGS (4)
  1. GLIMICRON [Concomitant]
     Active Substance: GLICLAZIDE
  2. GLIADEL [Suspect]
     Active Substance: CARMUSTINE
     Indication: MALIGNANT GLIOMA
     Dosage: [61.6 MG] INTRACEREBRAL
     Dates: start: 20130501, end: 20130501
  3. CRESTOR [Concomitant]
     Active Substance: ROSUVASTATIN CALCIUM
  4. AMLODIPINE [Concomitant]
     Active Substance: AMLODIPINE BESYLATE

REACTIONS (5)
  - Altered state of consciousness [None]
  - Pneumocephalus [None]
  - Condition aggravated [None]
  - Hemiplegia [None]
  - Brain oedema [None]

NARRATIVE: CASE EVENT DATE: 20130507
